FAERS Safety Report 6058779-1 (Version None)
Quarter: 2009Q1

REPORT INFORMATION
  Report Type: 
  Country: None (occurrence: None)
  Receive Date: 20090130
  Receipt Date: 20090121
  Transmission Date: 20090719
  Serious: Yes (Hospitalization, Other)
  Sender: FDA-Public Use
  Company Number: NL-JNJFOC-20090105727

PATIENT
  Age: 70 Year
  Sex: Female
  Weight: 78 kg

DRUGS (5)
  1. REMICADE [Suspect]
     Indication: RHEUMATOID ARTHRITIS
     Route: 042
  2. EMTHEXATE [Concomitant]
  3. PYRIDOXINE HCL [Concomitant]
  4. ARTHROTEC [Concomitant]
  5. ISONIAZID [Concomitant]
     Route: 048

REACTIONS (1)
  - OVARIAN CANCER [None]
